FAERS Safety Report 17677222 (Version 1)
Quarter: 2020Q2

REPORT INFORMATION
  Report Type: Spontaneous
  Country: LV (occurrence: LV)
  Receive Date: 20200416
  Receipt Date: 20200416
  Transmission Date: 20200714
  Serious: Yes (Other)
  Sender: FDA-Public Use
  Company Number: LV-BAUSCH-BL-2020-011041

PATIENT
  Age: 65 Year
  Sex: Female
  Weight: 77 kg

DRUGS (3)
  1. TAUFON [Concomitant]
     Indication: PRODUCT USED FOR UNKNOWN INDICATION
  2. YELLOX [Suspect]
     Active Substance: BROMFENAC SODIUM
     Indication: KERATORHEXIS
     Route: 047
     Dates: start: 20200306, end: 20200326
  3. CORNEREGEL [Concomitant]
     Active Substance: DEXPANTHENOL
     Indication: PRODUCT USED FOR UNKNOWN INDICATION

REACTIONS (4)
  - Erythema [Recovering/Resolving]
  - Eyelid oedema [Recovering/Resolving]
  - Pruritus [Recovering/Resolving]
  - Face oedema [Recovering/Resolving]

NARRATIVE: CASE EVENT DATE: 20200324
